FAERS Safety Report 5986984-9 (Version None)
Quarter: 2008Q4

REPORT INFORMATION
  Report Type: 
  Country: None (occurrence: None)
  Receive Date: 20081209
  Receipt Date: 20081201
  Transmission Date: 20090506
  Serious: Yes (Hospitalization)
  Sender: FDA-Public Use
  Company Number: A0742034B

PATIENT
  Age: 61 Year
  Sex: Male
  Weight: 82 kg

DRUGS (7)
  1. ELTROMBOPAG [Suspect]
     Indication: THROMBOCYTOPENIA
     Route: 048
     Dates: start: 20080509
  2. PEGASYS [Suspect]
     Route: 058
     Dates: start: 20080509
  3. COPEGUS [Suspect]
     Route: 048
     Dates: start: 20080509
  4. ELTROMBOPAG [Suspect]
     Dosage: 25MG PER DAY
     Route: 048
     Dates: start: 20080424, end: 20080509
  5. OXYCONTIN [Concomitant]
     Dosage: 30MG AS DIRECTED
     Route: 048
     Dates: end: 20081125
  6. OXYCODONE HCL [Concomitant]
     Dosage: 30MG AS REQUIRED
     Route: 048
     Dates: end: 20081125
  7. PROCRIT [Concomitant]
     Dosage: 40000UNIT EVERY 3 WEEKS
     Route: 058
     Dates: start: 20081024, end: 20081121

REACTIONS (2)
  - FEMORAL ARTERY OCCLUSION [None]
  - PAIN IN EXTREMITY [None]
